FAERS Safety Report 4907170-7 (Version None)
Quarter: 2006Q1

REPORT INFORMATION
  Report Type: 
  Country: None (occurrence: None)
  Receive Date: 20060206
  Receipt Date: 20051117
  Transmission Date: 20060701
  Serious: Yes (Hospitalization)
  Sender: FDA-Public Use
  Company Number: JPKYO-S-20060005-V001

PATIENT
  Age: 77 Year
  Sex: Male

DRUGS (9)
  1. NAVELBINE (VINORELBINE)SOLUTION FOR INJECTION [Suspect]
     Indication: LUNG NEOPLASM MALIGNANT
     Dosage: INTRAVENOUS
     Route: 042
     Dates: start: 20050815
  2. VINORELBINE TARTRATE [Suspect]
     Dosage: INTRAVENOUS
     Route: 042
     Dates: start: 20050610, end: 20051013
  3. OMEPRAZOLE [Concomitant]
  4. CIPROXAN [Concomitant]
  5. SULTAMUGIN [Concomitant]
  6. PAZUCROSS [Concomitant]
  7. SPIRIVA [Concomitant]
  8. SEREVENT [Concomitant]
  9. NAUZELIN [Concomitant]

REACTIONS (3)
  - ANOREXIA [None]
  - DIARRHOEA [None]
  - GENERAL PHYSICAL HEALTH DETERIORATION [None]
